FAERS Safety Report 9099266 (Version 1)
Quarter: 2013Q1

REPORT INFORMATION
  Report Type: Spontaneous
  Country: US (occurrence: US)
  Receive Date: 20130214
  Receipt Date: 20130214
  Transmission Date: 20140127
  Serious: No
  Sender: FDA-Public Use
  Company Number: US-PFIZER INC-2013055614

PATIENT
  Sex: Female

DRUGS (3)
  1. EFFEXOR XR [Suspect]
     Dosage: THREE 75 MG PILLS
  2. EFFEXOR [Suspect]
     Indication: GENERALISED ANXIETY DISORDER
     Dosage: UNK
  3. WELLBUTRIN [Suspect]
     Dosage: UNK

REACTIONS (3)
  - Feeling abnormal [Unknown]
  - Agitation [Unknown]
  - Weight increased [Unknown]
